FAERS Safety Report 23223099 (Version 1)
Quarter: 2023Q4

REPORT INFORMATION
  Report Type: Spontaneous
  Country: TW (occurrence: TW)
  Receive Date: 20231123
  Receipt Date: 20231123
  Transmission Date: 20240110
  Serious: Yes (Life-Threatening, Other)
  Sender: FDA-Public Use
  Company Number: TW-009507513-2311TWN006388

PATIENT
  Age: 71 Year
  Sex: Male
  Weight: 78 kg

DRUGS (5)
  1. KEYTRUDA [Suspect]
     Active Substance: PEMBROLIZUMAB
     Indication: Lung neoplasm malignant
     Dosage: 100 MG (2MG/KG; 60.606%DOSE ; IN SODIUM CHLORIDE 0.9% 250ML BOTTLE DOSE ADMINISTERED 100ML RUN 30 MI
     Route: 041
     Dates: start: 20230913
  2. KEYTRUDA [Suspect]
     Active Substance: PEMBROLIZUMAB
     Dosage: 100 MG (2MG/KG; 64.102%DOSE ; IN SODIUM CHLORIDE 0.9% 250ML BOTTLE DOSE ADMINISTERED 100ML RUN 30 MI
     Dates: start: 20231005
  3. PEMETREXED [Concomitant]
     Active Substance: PEMETREXED
     Dosage: UNK
     Dates: start: 20230913
  4. PEMETREXED [Concomitant]
     Active Substance: PEMETREXED
     Dosage: UNK
  5. CARBOPLATIN [Concomitant]
     Active Substance: CARBOPLATIN
     Dosage: UNK
     Dates: start: 20230913

REACTIONS (1)
  - Shock [Unknown]
